FAERS Safety Report 18512083 (Version 2)
Quarter: 2024Q3

REPORT INFORMATION
  Report Type: Spontaneous
  Country: DE (occurrence: DE)
  Receive Date: 20201117
  Receipt Date: 20240826
  Transmission Date: 20241017
  Serious: Yes (Other)
  Sender: NOVARTIS
  Company Number: DE-NOVARTISPH-NVSC2020DE305448

PATIENT

DRUGS (16)
  1. RITUXIMAB [Suspect]
     Active Substance: RITUXIMAB
     Indication: Central nervous system lymphoma
     Dosage: 375 MG/M2, CYCLIC (EVERY 2 WEEKS (CYCLE 1-3, DAY 0))
     Route: 042
  2. ACYCLOVIR [Suspect]
     Active Substance: ACYCLOVIR
     Indication: Product used for unknown indication
     Dosage: UNK, CYCLIC (AT EACH CYCLE)
     Route: 065
  3. METHOTREXATE [Suspect]
     Active Substance: METHOTREXATE
     Indication: Central nervous system lymphoma
     Dosage: 2.5 MG, CYCLIC EVERY 2 WEEKS (CYCLE 5, DAY 2-4 (WITH PREDNISOLONE) EVERY 3 WEEKS (CYCLE 4 PLUS 6, DA
     Route: 065
  4. METHOTREXATE [Suspect]
     Active Substance: METHOTREXATE
     Dosage: 4000 MG/M2, CYCLIC EVERY 2 WEEKS (CYCLE 1-3, DAY 1) (CYCLE 5, DAY 1)
     Route: 042
  5. METHOTREXATE [Suspect]
     Active Substance: METHOTREXATE
     Dosage: 2.5 MG, CYCLIC EVERY 2 WEEKS (CYCLE 5, DAY 2-4 (WITH PREDNISOLONE) EVERY 3 WEEKS (CYCLE 4 PLUS 6, DA
     Route: 065
  6. METHOTREXATE [Suspect]
     Active Substance: METHOTREXATE
     Dosage: 4000 MG/M2, CYCLIC EVERY 2 WEEKS (CYCLE 1-3, DAY 1) (CYCLE 5, DAY 1)
     Route: 042
  7. CYTARABINE [Suspect]
     Active Substance: CYTARABINE
     Indication: Central nervous system lymphoma
     Dosage: 10 MG, CYCLIC EVERY 3 WEEKS (CYCLE 4 PLUS 6, DAY 6)
     Route: 065
  8. CYTARABINE [Suspect]
     Active Substance: CYTARABINE
     Dosage: 10 MG, CYCLIC EVERY 2 WEEKS (CYCLE 5, DAY 5)
     Route: 065
  9. CYTARABINE [Suspect]
     Active Substance: CYTARABINE
     Dosage: 3000 MG/M2, CYCLIC EVERY 3 WEEKS (CYCLE 4 PLUS 6, DAY 1-2)
     Route: 042
  10. PREDNISOLONE [Suspect]
     Active Substance: PREDNISOLONE
     Indication: Central nervous system lymphoma
     Dosage: 3 MG ICV, CYCLIC EVERY 3 WEEKS (CYCLE 4 PLUS 6, DAY 3-5) (CYCLE 5, DAY 2-4) WITH METHOTREXATE
     Route: 065
  11. PREDNISOLONE [Suspect]
     Active Substance: PREDNISOLONE
     Dosage: 3 MG ICV, CYCLIC EVERY 3 WEEKS (CYCLE 4 PLUS 6, DAY 3-5) (CYCLE 5, DAY 2-4) WITH METHOTREXATE
     Route: 065
  12. IFOSFAMIDE [Suspect]
     Active Substance: IFOSFAMIDE
     Indication: Central nervous system lymphoma
     Dosage: 800 MG/M2, CYCLIC EVERY 2 WEEKS (CYCLE 5, DAY 2-4) (CYCLE 1-3, DAY 2-4)
     Route: 042
  13. IFOSFAMIDE [Suspect]
     Active Substance: IFOSFAMIDE
     Dosage: 800 MG/M2, CYCLIC EVERY 2 WEEKS (CYCLE 5, DAY 2-4) (CYCLE 1-3, DAY 2-4)
     Route: 042
  14. SULFAMETHOXAZOLE [Suspect]
     Active Substance: SULFAMETHOXAZOLE
     Indication: Product used for unknown indication
     Dosage: UNK, CYCLIC (AT EACH CYCLE )
     Route: 065
  15. MESNA [Suspect]
     Active Substance: MESNA
     Indication: Drug toxicity prophylaxis
     Dosage: UNK ADMINISTERED WITH IFOSFAMIDE AS PROTECTION
     Route: 065
  16. GRANULOCYTE COLONY-STIMULATING FACTOR NOS [Suspect]
     Active Substance: GRANULOCYTE COLONY-STIMULATING FACTOR NOS
     Indication: Prophylaxis
     Dosage: UNK UNK, CYCLIC (AT EACH CYCLE)
     Route: 065

REACTIONS (1)
  - Thrombocytopenia [Unknown]
